FAERS Safety Report 5252007-2 (Version None)
Quarter: 2007Q1

REPORT INFORMATION
  Report Type: 
  Country: None (occurrence: None)
  Receive Date: 20070223
  Receipt Date: 20070213
  Transmission Date: 20070707
  Serious: Yes (Other)
  Sender: FDA-Public Use
  Company Number: 2007SP002889

PATIENT
  Age: 28 Year
  Sex: Female

DRUGS (2)
  1. PEG-INTRON [Suspect]
     Dosage: 120 MCG; QW;
     Dates: start: 20061023, end: 20070209
  2. REBETOL [Suspect]
     Dosage: 800 MG; QD; PO
     Route: 048
     Dates: start: 20061023, end: 20070209

REACTIONS (1)
  - DIABETIC KETOACIDOSIS [None]
